FAERS Safety Report 10545344 (Version 1)
Quarter: 2014Q4

REPORT INFORMATION
  Report Type: Spontaneous
  Country: US (occurrence: US)
  Receive Date: 20141027
  Receipt Date: 20141027
  Transmission Date: 20150529
  Serious: Yes (Hospitalization)
  Sender: FDA-Public Use
  Company Number: US-B.I. PHARMACEUTICALS,INC./RIDGEFIELD-2014-BI-50920BP

PATIENT
  Sex: Female

DRUGS (2)
  1. ANTIFUNGAL [Concomitant]
     Active Substance: MICONAZOLE NITRATE\TERBINAFINE HYDROCHLORIDE
     Indication: SKIN DISORDER
     Route: 048
  2. JENTADUETO [Suspect]
     Active Substance: LINAGLIPTIN\METFORMIN HYDROCHLORIDE
     Indication: DIABETES MELLITUS
     Dosage: DOSE PER APPLICATION: 2.5 MG / 500 MG; DAILY DOSE: 5 MG/1000 MG
     Route: 048

REACTIONS (2)
  - Diverticulitis [Recovered/Resolved]
  - Colonic abscess [Recovered/Resolved]

NARRATIVE: CASE EVENT DATE: 20141016
